FAERS Safety Report 5723377-3 (Version None)
Quarter: 2008Q2

REPORT INFORMATION
  Report Type: 
  Country: None (occurrence: None)
  Receive Date: 20080429
  Receipt Date: 20080429
  Transmission Date: 20081010
  Serious: Yes (Hospitalization)
  Sender: FDA-Public Use
  Company Number: None

PATIENT
  Age: 2 Year
  Sex: Female
  Weight: 10 kg

DRUGS (1)
  1. INFANTS PAIN RELIEVER 80MG PER 0.8 MG EQUATE [Suspect]
     Indication: PYREXIA
     Dosage: UP TO 50 ML ONCE PO
     Route: 048
     Dates: start: 20080424, end: 20080424

REACTIONS (2)
  - INCORRECT DOSE ADMINISTERED [None]
  - MEDICATION ERROR [None]
